FAERS Safety Report 4933694-2 (Version None)
Quarter: 2006Q1

REPORT INFORMATION
  Report Type: 
  Country: None (occurrence: None)
  Receive Date: 20060106
  Receipt Date: 20051108
  Transmission Date: 20060701
  Serious: No
  Sender: FDA-Public Use
  Company Number: 200512460BWH

PATIENT
  Age: 79 Year
  Sex: Male

DRUGS (4)
  1. LEVITRA [Suspect]
     Dosage: SEE IMAGE
     Route: 048
     Dates: start: 20050101
  2. LEVITRA [Suspect]
     Dosage: SEE IMAGE
     Route: 048
     Dates: start: 20050101
  3. LANOXIN [Concomitant]
  4. COUMADIN [Concomitant]

REACTIONS (1)
  - ERECTILE DYSFUNCTION [None]
